FAERS Safety Report 5495927-6 (Version None)
Quarter: 2007Q4

REPORT INFORMATION
  Report Type: 
  Country: None (occurrence: None)
  Receive Date: 20071025
  Receipt Date: 20070307
  Transmission Date: 20080405
  Serious: No
  Sender: FDA-Public Use
  Company Number: A0632587A

PATIENT
  Age: 86 Year
  Sex: Female

DRUGS (5)
  1. ADVAIR DISKUS 100/50 [Suspect]
     Indication: DRUG USE FOR UNKNOWN INDICATION
     Dosage: 1PUFF UNKNOWN
     Route: 055
  2. THYROID TAB [Concomitant]
  3. ULTRACET [Concomitant]
  4. FERROUS SULFATE TAB [Concomitant]
  5. NEXIUM [Concomitant]

REACTIONS (2)
  - DRUG INEFFECTIVE [None]
  - PHARMACEUTICAL PRODUCT COMPLAINT [None]
